FAERS Safety Report 7509912-3 (Version None)
Quarter: 2011Q2

REPORT INFORMATION
  Report Type: 
  Country: None (occurrence: None)
  Receive Date: 20110519
  Receipt Date: 20110505
  Transmission Date: 20111010
  Serious: Yes (Hospitalization)
  Sender: FDA-Public Use
  Company Number: 2011MA005455

PATIENT
  Age: 48 Year
  Sex: Female

DRUGS (2)
  1. CITALOPRAM HYDROBROMIDE [Suspect]
     Indication: DEPRESSION
     Dosage: 20 MG;PO
     Route: 048
  2. ZOLMITRIPTAN [Suspect]
     Indication: MIGRAINE
     Dosage: 5 MG;PO
     Route: 048

REACTIONS (3)
  - BLOOD PRESSURE INCREASED [None]
  - ACUTE MYOCARDIAL INFARCTION [None]
  - PRINZMETAL ANGINA [None]
